FAERS Safety Report 7511146-3 (Version None)
Quarter: 2011Q2

REPORT INFORMATION
  Report Type: 
  Country: None (occurrence: None)
  Receive Date: 20110531
  Receipt Date: 20110520
  Transmission Date: 20111010
  Serious: Yes (Death, Other)
  Sender: FDA-Public Use
  Company Number: JP-JNJFOC-20110207433

PATIENT
  Sex: Female

DRUGS (57)
  1. FENTANYL-100 [Suspect]
     Indication: PAIN
     Route: 062
     Dates: start: 20101012, end: 20110214
  2. RHEUMATREX [Suspect]
     Route: 048
     Dates: end: 20101201
  3. LYRICA [Suspect]
     Indication: NEUROPATHY PERIPHERAL
     Route: 048
     Dates: start: 20110125
  4. LOXONIN [Suspect]
     Indication: PAIN
     Route: 065
  5. ADEFURONIC [Concomitant]
     Indication: RHEUMATOID ARTHRITIS
     Route: 054
     Dates: start: 20081206, end: 20101221
  6. ANFLAVATE [Concomitant]
     Indication: PERIARTHRITIS
     Route: 065
     Dates: start: 20100131, end: 20100131
  7. FELBINAC [Concomitant]
     Route: 062
     Dates: start: 20100823
  8. MEVALOTIN [Concomitant]
     Indication: HYPERCHOLESTEROLAEMIA
     Route: 048
  9. FOLIC ACID [Concomitant]
     Indication: FOLATE DEFICIENCY
     Route: 048
  10. FENTANYL-100 [Suspect]
     Route: 062
     Dates: start: 20110216, end: 20110218
  11. FENTANYL-100 [Suspect]
     Route: 062
     Dates: start: 20100922, end: 20101012
  12. LYRICA [Suspect]
     Route: 048
     Dates: start: 20110125
  13. ADEFURONIC [Concomitant]
     Indication: PERIARTHRITIS
     Route: 054
     Dates: start: 20081206, end: 20101221
  14. SUMILU [Concomitant]
     Indication: SPINAL OSTEOARTHRITIS
     Route: 062
     Dates: start: 20090510
  15. SUMILU [Concomitant]
     Indication: LUMBAR SPINAL STENOSIS
     Route: 062
     Dates: start: 20090510
  16. ANFLAVATE [Concomitant]
     Indication: RHEUMATOID ARTHRITIS
     Route: 065
     Dates: start: 20100131, end: 20100131
  17. FELBINAC [Concomitant]
     Route: 062
     Dates: start: 20100823
  18. STARSIS [Concomitant]
     Indication: DIABETES MELLITUS
     Route: 048
  19. FOSAMAC [Concomitant]
     Indication: OSTEOPOROSIS
     Route: 048
  20. RHEUMATREX [Suspect]
     Indication: RHEUMATOID ARTHRITIS
     Route: 048
     Dates: start: 20101201
  21. LYRICA [Suspect]
     Route: 048
  22. DEXART [Concomitant]
     Route: 065
  23. ETIZOLAM [Concomitant]
     Indication: ANXIETY DISORDER
     Route: 048
     Dates: start: 20090420
  24. FELBINAC [Concomitant]
     Route: 062
     Dates: start: 20100823
  25. LYRICA [Suspect]
     Indication: PAIN
     Route: 048
  26. ADEFURONIC [Concomitant]
     Indication: SPINAL OSTEOARTHRITIS
     Route: 054
     Dates: start: 20081206, end: 20101221
  27. ANFLAVATE [Concomitant]
     Indication: SPINAL OSTEOARTHRITIS
     Route: 065
     Dates: start: 20100131, end: 20100131
  28. ANFLAVATE [Concomitant]
     Indication: LUMBAR SPINAL STENOSIS
     Route: 065
     Dates: start: 20100131, end: 20100131
  29. FELBINAC [Concomitant]
     Indication: LUMBAR SPINAL STENOSIS
     Route: 061
     Dates: start: 20100818
  30. PRORENAL [Concomitant]
     Indication: LUMBAR SPINAL STENOSIS
     Route: 048
     Dates: start: 20101018, end: 20101102
  31. NOLPORT [Concomitant]
     Route: 065
  32. FENTANYL-100 [Suspect]
     Route: 062
     Dates: start: 20100922, end: 20101012
  33. FENTANYL-100 [Suspect]
     Route: 062
     Dates: start: 20101012, end: 20110214
  34. SUMILU [Concomitant]
     Indication: PERIARTHRITIS
     Route: 062
     Dates: start: 20090510
  35. FELBINAC [Concomitant]
     Indication: RHEUMATOID ARTHRITIS
     Route: 061
     Dates: start: 20100818
  36. SODIUM HYALURONATE [Concomitant]
     Route: 065
  37. CYANOCOBALAMIN [Concomitant]
     Route: 065
  38. DIOVAN [Concomitant]
     Indication: HYPERTENSION
     Route: 048
  39. PROCHLORPERAZINE [Suspect]
     Indication: PRODUCT USED FOR UNKNOWN INDICATION
     Route: 065
  40. SUMILU [Concomitant]
     Indication: RHEUMATOID ARTHRITIS
     Route: 062
     Dates: start: 20090510
  41. FELBINAC [Concomitant]
     Indication: PERIARTHRITIS
     Route: 061
     Dates: start: 20100818
  42. FELBINAC [Concomitant]
     Indication: SPINAL OSTEOARTHRITIS
     Route: 061
     Dates: start: 20100818
  43. FELBINAC [Concomitant]
     Route: 062
     Dates: start: 20100823
  44. PRIMPERAN TAB [Concomitant]
     Route: 048
     Dates: start: 20100922, end: 20100929
  45. PROCHLORPERAZINE [Concomitant]
     Route: 048
     Dates: start: 20110214
  46. MEDROL [Concomitant]
     Indication: RHEUMATOID ARTHRITIS
     Route: 048
  47. FENTANYL-100 [Suspect]
     Route: 062
     Dates: start: 20110214, end: 20110218
  48. ANTIDIABETIC DRUG [Suspect]
     Indication: PRODUCT USED FOR UNKNOWN INDICATION
     Route: 065
  49. SODIUM HYALURONATE [Concomitant]
     Route: 065
  50. ATELEC [Concomitant]
     Indication: HYPERTENSION
     Route: 048
  51. FENTANYL-100 [Suspect]
     Route: 062
     Dates: start: 20110214
  52. RHEUMATREX [Suspect]
     Route: 048
     Dates: start: 20110205
  53. ADEFURONIC [Concomitant]
     Indication: LUMBAR SPINAL STENOSIS
     Route: 054
     Dates: start: 20081206, end: 20101221
  54. CILOSTAZOL [Concomitant]
     Indication: ARTERIOSCLEROSIS OBLITERANS
     Route: 048
     Dates: start: 20101214
  55. ELCATONIN [Concomitant]
     Route: 030
  56. XYLOCAINE [Concomitant]
     Route: 065
  57. AZULFIDINE [Concomitant]
     Indication: RHEUMATOID ARTHRITIS
     Route: 065

REACTIONS (19)
  - INTERSTITIAL LUNG DISEASE [None]
  - ALTERED STATE OF CONSCIOUSNESS [None]
  - SEPSIS [None]
  - SOMNOLENCE [None]
  - CONDITION AGGRAVATED [None]
  - STAPHYLOCOCCAL INFECTION [None]
  - CIRCULATORY COLLAPSE [None]
  - TOXICITY TO VARIOUS AGENTS [None]
  - ABNORMAL BEHAVIOUR [None]
  - ALANINE AMINOTRANSFERASE INCREASED [None]
  - BACK PAIN [None]
  - RESPIRATION ABNORMAL [None]
  - MENTAL IMPAIRMENT [None]
  - OXYGEN SATURATION DECREASED [None]
  - NAUSEA [None]
  - SCIATICA [None]
  - ASPARTATE AMINOTRANSFERASE INCREASED [None]
  - SPEECH DISORDER [None]
  - HEADACHE [None]
